FAERS Safety Report 15994668 (Version 3)
Quarter: 2021Q2

REPORT INFORMATION
  Report Type: Spontaneous
  Country: US (occurrence: US)
  Receive Date: 20190222
  Receipt Date: 20210405
  Transmission Date: 20210716
  Serious: Yes (Other)
  Sender: FDA-Public Use
  Company Number: PHEH2019US007257

PATIENT
  Sex: Male

DRUGS (1)
  1. TASIGNA [Suspect]
     Active Substance: NILOTINIB
     Indication: CHRONIC MYELOID LEUKAEMIA
     Dosage: 1 DF, BID
     Route: 048
     Dates: start: 201308, end: 2018

REACTIONS (52)
  - Meningioma [Unknown]
  - Rhinitis allergic [Unknown]
  - Anaemia [Unknown]
  - Fatigue [Unknown]
  - Arthralgia [Unknown]
  - Arteriosclerosis [Unknown]
  - Haematochezia [Unknown]
  - Gastrointestinal haemorrhage [Unknown]
  - Diverticulum [Unknown]
  - Intermittent claudication [Unknown]
  - Restless legs syndrome [Unknown]
  - Pulmonary fibrosis [Unknown]
  - Type V hyperlipidaemia [Unknown]
  - Nephrolithiasis [Unknown]
  - Peripheral vascular disorder [Unknown]
  - Head injury [Unknown]
  - Hypoacusis [Unknown]
  - Fibromyalgia [Unknown]
  - Injury [Unknown]
  - Vertigo [Unknown]
  - Sleep apnoea syndrome [Unknown]
  - Osteoarthritis [Unknown]
  - Pain [Unknown]
  - Peripheral arterial occlusive disease [Unknown]
  - Anxiety [Unknown]
  - Ulcer [Unknown]
  - Fall [Unknown]
  - Gastrooesophageal reflux disease [Unknown]
  - Back pain [Unknown]
  - Gout [Unknown]
  - Dyspnoea [Unknown]
  - Dementia [Unknown]
  - Renal failure [Unknown]
  - Cervical radiculopathy [Unknown]
  - Chronic obstructive pulmonary disease [Unknown]
  - Hypoaesthesia [Unknown]
  - Hypertension [Unknown]
  - Emotional distress [Unknown]
  - Rectal haemorrhage [Unknown]
  - Peripheral artery occlusion [Unknown]
  - Benign prostatic hyperplasia [Unknown]
  - Asbestosis [Unknown]
  - Prostatomegaly [Unknown]
  - Temperature intolerance [Unknown]
  - Pain in extremity [Unknown]
  - Arterial occlusive disease [Unknown]
  - Meniere^s disease [Unknown]
  - Peripheral artery stenosis [Unknown]
  - Large intestine polyp [Unknown]
  - Depression [Unknown]
  - Neck pain [Unknown]
  - Amnesia [Unknown]
